FAERS Safety Report 9168274 (Version 2)
Quarter: 2013Q1

REPORT INFORMATION
  Report Type: Report from Study
  Country: BR (occurrence: BR)
  Receive Date: 20130318
  Receipt Date: 20130327
  Transmission Date: 20140127
  Serious: Yes (Hospitalization)
  Sender: FDA-Public Use
  Company Number: BR-ABBOTT-13P-020-1062384-00

PATIENT
  Age: 75 None
  Sex: Female
  Weight: 56 kg

DRUGS (6)
  1. HUMIRA [Suspect]
     Indication: PRODUCT USED FOR UNKNOWN INDICATION
     Route: 058
  2. MODURETIC [Concomitant]
     Indication: BLOOD PRESSURE
     Route: 048
     Dates: start: 1993
  3. OMEPRAZOLE [Concomitant]
     Indication: GASTRIC DISORDER
     Route: 048
     Dates: start: 1998
  4. OMEPRAZOLE [Concomitant]
     Indication: PROPHYLAXIS
  5. UNKNOWN DRUG [Concomitant]
     Indication: PAIN
     Route: 048
     Dates: start: 2003
  6. DEFLAZACORT [Concomitant]
     Indication: PRODUCT USED FOR UNKNOWN INDICATION
     Route: 048
     Dates: start: 2003

REACTIONS (5)
  - Pneumonia [Recovered/Resolved]
  - Dementia Alzheimer^s type [Unknown]
  - Lactose intolerance [Recovered/Resolved]
  - Diarrhoea [Recovered/Resolved]
  - Memory impairment [Not Recovered/Not Resolved]
